FAERS Safety Report 7916960-8 (Version None)
Quarter: 2011Q4

REPORT INFORMATION
  Report Type: 
  Country: None (occurrence: None)
  Receive Date: 20111116
  Receipt Date: 20111102
  Transmission Date: 20120403
  Serious: No
  Sender: FDA-Public Use
  Company Number: US-B.I. PHARMACEUTICALS,INC./RIDGEFIELD-2011-BP-25521BP

PATIENT
  Sex: Male

DRUGS (6)
  1. ATENOLOL [Concomitant]
     Indication: HYPERTENSION
     Dosage: 25 MG
     Route: 048
  2. CARDURA [Concomitant]
     Indication: HYPERTENSION
     Dosage: 3 MG
     Route: 048
  3. DIOVAN HCT [Concomitant]
     Indication: HYPERTENSION
     Route: 048
  4. LEVOXYL [Concomitant]
     Indication: HYPOTHYROIDISM
     Dosage: 75 MCG
     Route: 048
  5. PRADAXA [Suspect]
     Indication: ATRIAL FIBRILLATION
     Dosage: 300 MG
     Route: 048
     Dates: start: 20111024, end: 20111030
  6. PREVACID [Concomitant]
     Indication: DYSPEPSIA
     Dosage: 15 MCG
     Route: 048

REACTIONS (2)
  - RASH MACULAR [None]
  - OPEN WOUND [None]
